FAERS Safety Report 19843111 (Version 2)
Quarter: 2021Q4

REPORT INFORMATION
  Report Type: Spontaneous
  Country: US (occurrence: US)
  Receive Date: 20210917
  Receipt Date: 20211005
  Transmission Date: 20220303
  Serious: No
  Sender: FDA-Public Use
  Company Number: US-DRREDDYS-SPO/USA/21/0140043

PATIENT
  Age: 76 Year
  Sex: Female
  Weight: 65.25 kg

DRUGS (4)
  1. NICOTINE [Suspect]
     Active Substance: NICOTINE
     Indication: Tobacco user
     Route: 062
     Dates: end: 20210909
  2. HABITROL [Suspect]
     Active Substance: NICOTINE
     Indication: Tobacco user
     Route: 062
     Dates: start: 20200730, end: 20210817
  3. NICODERM CQ [Suspect]
     Active Substance: NICOTINE
     Indication: Tobacco user
  4. ALPRAZOLAM [Concomitant]
     Active Substance: ALPRAZOLAM
     Indication: Product used for unknown indication

REACTIONS (6)
  - Skin swelling [Unknown]
  - Application site pruritus [Unknown]
  - Application site pain [Unknown]
  - Underdose [Unknown]
  - Product dose omission issue [Unknown]
  - Expired product administered [Unknown]
